FAERS Safety Report 13288152 (Version 2)
Quarter: 2017Q1

REPORT INFORMATION
  Report Type: Spontaneous
  Country: US (occurrence: US)
  Receive Date: 20170302
  Receipt Date: 20170328
  Transmission Date: 20170428
  Serious: Yes (Other)
  Sender: FDA-Public Use
  Company Number: US-ROCHE-1897203

PATIENT
  Age: 65 Year
  Sex: Female
  Weight: 49.44 kg

DRUGS (5)
  1. KLONOPIN [Suspect]
     Active Substance: CLONAZEPAM
     Indication: PRODUCT USED FOR UNKNOWN INDICATION
     Dosage: ONGOING: YES, CUTS A 1MG TABLET IN HALF AND TAKES AT BED TIME
     Route: 048
  2. PRISTIQ EXTENDED-RELEASE [Suspect]
     Active Substance: DESVENLAFAXINE SUCCINATE
     Indication: ANXIETY
     Dosage: 50 MG EXTENDED RELEASE TABLET BY MOUTH ONCE, STOP
     Route: 048
     Dates: start: 201603, end: 201603
  3. PRISTIQ EXTENDED-RELEASE [Suspect]
     Active Substance: DESVENLAFAXINE SUCCINATE
     Indication: PANIC ATTACK
     Dosage: ONGOING:YES, 25MG ERTABLET BY MOUTH ONCE DAY IN THE MORNING
     Route: 048
     Dates: start: 20170104
  4. PRISTIQ EXTENDED-RELEASE [Suspect]
     Active Substance: DESVENLAFAXINE SUCCINATE
     Indication: DEPRESSION
  5. TRAZODONE [Concomitant]
     Active Substance: TRAZODONE HYDROCHLORIDE
     Dosage: ONGOING: YES, A HALF OF A 50MG WHICH EQUALS 25 MG
     Route: 065

REACTIONS (12)
  - Drug ineffective [Unknown]
  - Underweight [Unknown]
  - Disturbance in attention [Unknown]
  - Feeding disorder [Unknown]
  - Fear [Unknown]
  - Panic disorder [Unknown]
  - Fatigue [Unknown]
  - Palpitations [Unknown]
  - Dizziness [Recovered/Resolved]
  - Anxiety [Unknown]
  - Vision blurred [Recovered/Resolved]
  - Sleep disorder [Unknown]

NARRATIVE: CASE EVENT DATE: 201603
